FAERS Safety Report 25187875 (Version 2)
Quarter: 2025Q2

REPORT INFORMATION
  Report Type: Report from Study
  Country: US (occurrence: US)
  Receive Date: 20250411
  Receipt Date: 20250520
  Transmission Date: 20250717
  Serious: Yes (Hospitalization, Other)
  Sender: GILEAD
  Company Number: US-GILEAD-2025-0709729

PATIENT
  Age: 12 Year
  Sex: Female

DRUGS (9)
  1. AZTREONAM LYSINE [Suspect]
     Active Substance: AZTREONAM LYSINE
     Indication: Cystic fibrosis
     Dosage: INHALE 75 MG VIA ALTERA NEBULIZER THREE TIMES DAILY, CYCLE FOR 28 DAYS ON AND 28 DAYS OFF
     Route: 055
     Dates: start: 202301
  2. TOBRAMYCIN [Concomitant]
     Active Substance: TOBRAMYCIN
  3. BACTRIM [Concomitant]
     Active Substance: SULFAMETHOXAZOLE\TRIMETHOPRIM
  4. LEVALBUTEROL [Concomitant]
     Active Substance: LEVALBUTEROL
  5. PHENOBARBITAL [Concomitant]
     Active Substance: PHENOBARBITAL
  6. CHLORTHALIDONE [Concomitant]
     Active Substance: CHLORTHALIDONE
  7. LEVOTHYROXINE SODIUM [Concomitant]
     Active Substance: LEVOTHYROXINE SODIUM
  8. KEPPRA [Concomitant]
     Active Substance: LEVETIRACETAM
  9. OXYBUTYNIN CHLORIDE [Concomitant]
     Active Substance: OXYBUTYNIN CHLORIDE

REACTIONS (2)
  - Infection [Unknown]
  - Pneumonia aspiration [Unknown]

NARRATIVE: CASE EVENT DATE: 20250401
